FAERS Safety Report 6442862-2 (Version None)
Quarter: 2009Q4

REPORT INFORMATION
  Report Type: 
  Country: None (occurrence: None)
  Receive Date: 20091117
  Receipt Date: 20091106
  Transmission Date: 20100525
  Serious: Yes (Other)
  Sender: FDA-Public Use
  Company Number: US-BAYER-200916515BCC

PATIENT
  Age: 47 Year
  Sex: Female
  Weight: 55 kg

DRUGS (9)
  1. ALKA-SELTZER EFFERVESCENT COLD [Suspect]
     Indication: NASOPHARYNGITIS
     Dosage: UNIT DOSE: 1 DF
     Route: 048
     Dates: start: 20091001, end: 20091001
  2. ALKA-SELTZER EFFERVESCENT COLD [Suspect]
     Dosage: UNIT DOSE: 1 DF
     Route: 048
     Dates: start: 20091030, end: 20091030
  3. ALKA-SELTZER EFFERVESCENT COLD [Suspect]
     Dosage: UNIT DOSE: 1 DF
     Route: 048
     Dates: start: 20091031, end: 20091031
  4. ALKA-SELTZER EFFERVESCENT COLD [Suspect]
     Dosage: TOTAL DAILY DOSE: 4 DF  UNIT DOSE: 1 DF
     Route: 048
     Dates: start: 20091102, end: 20091102
  5. ALKA-SELTZER EFFERVESCENT COLD [Suspect]
     Dosage: UNIT DOSE: 1 DF
     Route: 048
     Dates: start: 20091103, end: 20091103
  6. ALKA-SELTZER EFFERVESCENT COLD [Suspect]
     Dosage: UNIT DOSE: 1 DF
     Route: 048
     Dates: start: 20091101, end: 20091101
  7. TYLENOL SINUS [Concomitant]
     Dosage: TOOK TYLENOL SINUS PERIODICALLY, TOOK ABOUT 6 HOURS AFTER TOOK ASP
     Route: 065
  8. CLARITIN [Concomitant]
     Dosage: TOTAL DAILY DOSE: 1 DF  UNIT DOSE: 1 DF
     Route: 065
  9. COUGH MEDICATION [Concomitant]
     Indication: DRUG USE FOR UNKNOWN INDICATION
     Route: 065

REACTIONS (6)
  - EUSTACHIAN TUBE DISORDER [None]
  - HYPOACUSIS [None]
  - PRODUCTIVE COUGH [None]
  - RHINORRHOEA [None]
  - SINUSITIS [None]
  - TYMPANIC MEMBRANE DISORDER [None]
